FAERS Safety Report 4598719-5 (Version None)
Quarter: 2005Q1

REPORT INFORMATION
  Report Type: 
  Country: None (occurrence: None)
  Receive Date: 20050302
  Receipt Date: 20050218
  Transmission Date: 20050727
  Serious: Yes (Other)
  Sender: FDA-Public Use
  Company Number: 200510078BYL

PATIENT
  Age: 79 Year
  Sex: Female
  Weight: 47.1 kg

DRUGS (4)
  1. ASPIRIN [Suspect]
     Indication: CEREBRAL INFARCTION
     Dosage: ORAL
     Route: 048
     Dates: start: 20041029, end: 20041115
  2. ASPIRIN [Suspect]
     Indication: CEREBRAL INFARCTION
     Dosage: ORAL
     Route: 048
     Dates: start: 20041222, end: 20041225
  3. NICERGOLINE [Concomitant]
  4. MINOCYCLINE HCL [Concomitant]

REACTIONS (3)
  - CEREBRAL INFARCTION [None]
  - CRYPTOGENIC ORGANIZING PNEUMONIA [None]
  - THERAPY NON-RESPONDER [None]
